FAERS Safety Report 7670155-4 (Version None)
Quarter: 2011Q3

REPORT INFORMATION
  Report Type: 
  Country: None (occurrence: None)
  Receive Date: 20110808
  Receipt Date: 20110802
  Transmission Date: 20111222
  Serious: Yes (Life-Threatening, Hospitalization, Other)
  Sender: FDA-Public Use
  Company Number: US-ASTRAZENECA-2011SE30385

PATIENT
  Age: 43 Year
  Sex: Female

DRUGS (1)
  1. SEROQUEL [Suspect]
     Indication: BIPOLAR I DISORDER
     Dosage: 150MG TITTRATED UP TO 600MG WITHIN ONE WEEK
     Route: 048
     Dates: start: 20110408, end: 20110518

REACTIONS (6)
  - DELIRIUM [None]
  - LOSS OF CONSCIOUSNESS [None]
  - STEVENS-JOHNSON SYNDROME [None]
  - ADVERSE DRUG REACTION [None]
  - NAUSEA [None]
  - DIPLOPIA [None]
